FAERS Safety Report 7587316-5 (Version None)
Quarter: 2011Q3

REPORT INFORMATION
  Report Type: 
  Country: None (occurrence: None)
  Receive Date: 20110701
  Receipt Date: 20110624
  Transmission Date: 20111222
  Serious: Yes (Hospitalization, Disabling, Other)
  Sender: FDA-Public Use
  Company Number: US-MERCK-1102USA01706

PATIENT
  Age: 74 Year
  Sex: Female
  Weight: 82 kg

DRUGS (15)
  1. VITAMIN D (UNSPECIFIED) [Concomitant]
     Route: 065
  2. FOSAMAX [Suspect]
     Route: 048
     Dates: start: 19980101
  3. FOSAMAX [Suspect]
     Route: 048
     Dates: start: 19980101
  4. FOSAMAX [Suspect]
     Route: 048
     Dates: start: 19980101
  5. ASPIRIN [Concomitant]
     Route: 065
  6. CALCIUM (UNSPECIFIED) [Concomitant]
     Route: 065
  7. BUMETANIDE [Concomitant]
     Route: 065
  8. FOSAMAX [Suspect]
     Indication: OSTEOPENIA
     Route: 048
     Dates: start: 19980114, end: 20080901
  9. CENTRUM SILVER [Concomitant]
     Route: 065
     Dates: start: 19910101
  10. POTASSIUM (UNSPECIFIED) [Concomitant]
     Route: 065
  11. FOSAMAX [Concomitant]
     Route: 048
     Dates: start: 20090201
  12. FOSAMAX [Suspect]
     Indication: OSTEOPOROSIS
     Route: 048
     Dates: start: 19980114, end: 20080901
  13. FOSAMAX [Suspect]
     Route: 048
     Dates: start: 19980101
  14. SYNTHROID [Concomitant]
     Route: 065
  15. FOSAMAX [Concomitant]
     Route: 048
     Dates: start: 20090201

REACTIONS (62)
  - HIP FRACTURE [None]
  - RENAL FAILURE [None]
  - LACERATION [None]
  - HEAD INJURY [None]
  - BLOOD PRESSURE INCREASED [None]
  - MUSCULOSKELETAL PAIN [None]
  - VITAMIN D DEFICIENCY [None]
  - UPPER RESPIRATORY TRACT INFECTION [None]
  - SPONDYLOLISTHESIS [None]
  - POOR QUALITY SLEEP [None]
  - HEADACHE [None]
  - MUSCULOSKELETAL CHEST PAIN [None]
  - HAEMOPTYSIS [None]
  - CARDIOMEGALY [None]
  - ASTHMA [None]
  - VISION BLURRED [None]
  - THROMBOPHLEBITIS SUPERFICIAL [None]
  - RENAL CYST [None]
  - DYSPNOEA [None]
  - CHOLELITHIASIS [None]
  - ARTHRALGIA [None]
  - SCIATICA [None]
  - NASOPHARYNGITIS [None]
  - OEDEMA [None]
  - BLOOD GLUCOSE INCREASED [None]
  - STRESS FRACTURE [None]
  - SYNCOPE [None]
  - OEDEMA PERIPHERAL [None]
  - DECREASED APPETITE [None]
  - BACK PAIN [None]
  - FEMUR FRACTURE [None]
  - BLOOD PRESSURE INADEQUATELY CONTROLLED [None]
  - BONE DENSITY DECREASED [None]
  - SINUSITIS [None]
  - FALL [None]
  - IRRITABLE BOWEL SYNDROME [None]
  - ORAL HERPES [None]
  - VERTIGO [None]
  - SPINAL OSTEOARTHRITIS [None]
  - LIGAMENT SPRAIN [None]
  - CATARACT [None]
  - BRONCHITIS [None]
  - RESPIRATORY ACIDOSIS [None]
  - PNEUMONIA ASPIRATION [None]
  - OSTEOPOROSIS [None]
  - HYPOTHYROIDISM [None]
  - ROTATOR CUFF SYNDROME [None]
  - PAIN IN EXTREMITY [None]
  - FIBROMYALGIA [None]
  - CELLULITIS [None]
  - GLUCOSE TOLERANCE IMPAIRED [None]
  - HYPERCAPNIA [None]
  - FIBRIN D DIMER INCREASED [None]
  - RHEUMATOID ARTHRITIS [None]
  - PALPITATIONS [None]
  - ANAEMIA [None]
  - NON-CARDIAC CHEST PAIN [None]
  - EAR PAIN [None]
  - HYPERTENSION [None]
  - ORAL DISORDER [None]
  - CONJUNCTIVITIS [None]
  - MEMORY IMPAIRMENT [None]
